FAERS Safety Report 11967187 (Version 1)
Quarter: 2016Q1

REPORT INFORMATION
  Report Type: Spontaneous
  Country: US (occurrence: US)
  Receive Date: 20160127
  Receipt Date: 20160127
  Transmission Date: 20160526
  Serious: Yes (Other)
  Sender: FDA-Public Use
  Company Number: US-ABBVIE-15P-163-1510924-00

PATIENT
  Age: 65 Year
  Sex: Female

DRUGS (1)
  1. TRIDIONE [Suspect]
     Active Substance: TRIMETHADIONE
     Indication: PETIT MAL EPILEPSY
     Route: 048
     Dates: start: 1997

REACTIONS (3)
  - White blood cell count decreased [Not Recovered/Not Resolved]
  - Pancytopenia [Not Recovered/Not Resolved]
  - Haemoglobin decreased [Not Recovered/Not Resolved]

NARRATIVE: CASE EVENT DATE: 20151123
